FAERS Safety Report 8009418-1 (Version None)
Quarter: 2011Q4

REPORT INFORMATION
  Report Type: 
  Country: None (occurrence: None)
  Receive Date: 20111227
  Receipt Date: 20111219
  Transmission Date: 20120403
  Serious: Yes (Other)
  Sender: FDA-Public Use
  Company Number: US-ROCHE-798756

PATIENT
  Sex: Male
  Weight: 72.64 kg

DRUGS (2)
  1. ACCUTANE [Suspect]
     Route: 048
     Dates: start: 19971217, end: 19980501
  2. ACCUTANE [Suspect]
     Indication: ACNE CYSTIC
     Route: 048
     Dates: start: 19970210, end: 19970601

REACTIONS (8)
  - EPISTAXIS [None]
  - INFLAMMATORY BOWEL DISEASE [None]
  - ANXIETY [None]
  - DRY SKIN [None]
  - HEADACHE [None]
  - DEPRESSION [None]
  - LIP DRY [None]
  - COLITIS ULCERATIVE [None]
